FAERS Safety Report 12192746 (Version 1)
Quarter: 2016Q1

REPORT INFORMATION
  Report Type: Spontaneous
  Country: US (occurrence: US)
  Receive Date: 20160318
  Receipt Date: 20160318
  Transmission Date: 20160526
  Serious: Yes (Hospitalization)
  Sender: FDA-Public Use
  Company Number: US-FRESENIUS KABI-FK201601345

PATIENT
  Age: 7 Year
  Sex: Female
  Weight: 23.8 kg

DRUGS (22)
  1. CYCLOPHOSPHAMIDE. [Suspect]
     Active Substance: CYCLOPHOSPHAMIDE
     Indication: ANAPLASTIC LARGE-CELL LYMPHOMA
     Route: 042
     Dates: start: 20160104
  2. OLANZAPINE. [Concomitant]
     Active Substance: OLANZAPINE
  3. METHOTREXATE (MANUFACTURER UNKNOWN) [Suspect]
     Active Substance: METHOTREXATE
     Indication: ANAPLASTIC LARGE-CELL LYMPHOMA
     Route: 037
  4. CRIZOTINIB [Suspect]
     Active Substance: CRIZOTINIB
     Route: 048
     Dates: start: 20160104, end: 20160118
  5. ACETAMINOPHEN-HYDROCODONE [Concomitant]
  6. VP-16 [Concomitant]
     Active Substance: ETOPOSIDE
  7. IFOSFAMIDE. [Concomitant]
     Active Substance: IFOSFAMIDE
  8. LIDOCAINE W/PRILOCAINE [Concomitant]
  9. SCOPOLAMINE [Concomitant]
     Active Substance: SCOPOLAMINE
  10. DIPHENHYDRAMINE/LIDOCAINE [Concomitant]
  11. CRIZOTINIB [Suspect]
     Active Substance: CRIZOTINIB
     Indication: ANAPLASTIC LARGE-CELL LYMPHOMA
     Route: 048
     Dates: start: 20151215
  12. DEXAMETHASONE. [Concomitant]
     Active Substance: DEXAMETHASONE
     Dates: start: 20160104
  13. METHOTREXATE (MANUFACTURER UNKNOWN) [Suspect]
     Active Substance: METHOTREXATE
     Route: 042
     Dates: start: 20151215
  14. DOXORUBICIN HYDROCHLORIDE. [Concomitant]
     Active Substance: DOXORUBICIN HYDROCHLORIDE
  15. MELATONIN [Concomitant]
     Active Substance: MELATONIN
  16. SENNA [Concomitant]
     Active Substance: SENNA LEAF\SENNOSIDES\SENNOSIDES A AND B
  17. LORAZEPAM. [Concomitant]
     Active Substance: LORAZEPAM
  18. CETIRIZINE [Concomitant]
     Active Substance: CETIRIZINE HYDROCHLORIDE
  19. METHOTREXATE (MANUFACTURER UNKNOWN) [Suspect]
     Active Substance: METHOTREXATE
     Route: 042
     Dates: start: 20160104
  20. DEXAMETHASONE. [Concomitant]
     Active Substance: DEXAMETHASONE
     Dates: start: 20151215
  21. SULFAMETHOXAZOLE AND TRIMETHOPRIM [Concomitant]
     Active Substance: SULFAMETHOXAZOLE\TRIMETHOPRIM
  22. MAALOX ANTACID [Concomitant]
     Active Substance: ALUMINUM HYDROXIDE\DIMETHICONE\MAGNESIUM HYDROXIDE

REACTIONS (1)
  - Respiratory failure [Recovering/Resolving]

NARRATIVE: CASE EVENT DATE: 20160119
